FAERS Safety Report 4607828-3 (Version None)
Quarter: 2005Q1

REPORT INFORMATION
  Report Type: 
  Country: None (occurrence: None)
  Receive Date: 20050310
  Receipt Date: 20050228
  Transmission Date: 20050727
  Serious: Yes (Hospitalization, Other)
  Sender: FDA-Public Use
  Company Number: 200510490GDS

PATIENT
  Age: 55 Year
  Sex: Female

DRUGS (1)
  1. ASPIRIN [Suspect]
     Indication: PROPHYLAXIS
     Dosage: 300 MG, TOTAL DAILY

REACTIONS (5)
  - ARTERIOSPASM CORONARY [None]
  - DYSPNOEA [None]
  - MEDICATION ERROR [None]
  - MYOCARDIAL INFARCTION [None]
  - URTICARIA GENERALISED [None]
